FAERS Safety Report 4300045-6 (Version None)
Quarter: 2004Q1

REPORT INFORMATION
  Report Type: 
  Country: None (occurrence: None)
  Receive Date: 20040219
  Receipt Date: 20040219
  Transmission Date: 20041129
  Serious: Yes (Hospitalization)
  Sender: FDA-Public Use
  Company Number: None

PATIENT
  Age: 71 Year
  Sex: Male

DRUGS (8)
  1. GLIPIZIDE [Suspect]
     Indication: DIABETES MELLITUS
     Dosage: 1 PO QD
     Route: 048
  2. DONEPEZIL [Concomitant]
  3. FELODIPINE [Concomitant]
  4. FERROUS SULFATE TAB [Concomitant]
  5. FOSINOPRIL SODIUM [Concomitant]
  6. FUROSEMIDE [Concomitant]
  7. GLIPIZIDE [Concomitant]
  8. MAG OX [Concomitant]

REACTIONS (1)
  - HYPOGLYCAEMIA [None]
